FAERS Safety Report 9293961 (Version 1)
Quarter: 2013Q1

REPORT INFORMATION
  Report Type: Spontaneous
  Country: US (occurrence: None)
  Receive Date: 20121221
  Receipt Date: 20121221
  Transmission Date: 20140127
  Serious: Yes (Other)
  Sender: FDA-Public Use
  Company Number: PHEH2012US013247

PATIENT
  Age: 7 Year
  Sex: Male

DRUGS (1)
  1. FOCALIN XR (DEXMETHYLPHENIDATE HYDROCHLORIDE) EXTENDED RELEASE CAPSULES [Suspect]

REACTIONS (1)
  - Attention deficit/hyperactivity disorder [None]
